FAERS Safety Report 19525465 (Version 1)
Quarter: 2021Q3

REPORT INFORMATION
  Report Type: Spontaneous
  Country: US (occurrence: US)
  Receive Date: 20210713
  Receipt Date: 20210713
  Transmission Date: 20211014
  Serious: Yes (Hospitalization, Other)
  Sender: FDA-Public Use
  Company Number: US-HIKMA PHARMACEUTICALS USA INC.-US-H14001-21-03140

PATIENT
  Age: 28 Year
  Sex: Male
  Weight: 53.2 kg

DRUGS (2)
  1. INCB039110 [Suspect]
     Active Substance: ITACITINIB
     Indication: GRAFT VERSUS HOST DISEASE
     Route: 048
     Dates: start: 20210405, end: 20210501
  2. PREDNISONE. [Suspect]
     Active Substance: PREDNISONE
     Indication: GRAFT VERSUS HOST DISEASE
     Route: 048
     Dates: start: 20210428

REACTIONS (13)
  - Dysuria [Recovering/Resolving]
  - Nausea [Recovering/Resolving]
  - Oesophagitis [Unknown]
  - Abdominal pain [Recovered/Resolved]
  - Constipation [Unknown]
  - Anaemia [Unknown]
  - Prostatitis [Unknown]
  - Dyspnoea [Recovered/Resolved]
  - Hyponatraemia [Unknown]
  - Dyspepsia [Unknown]
  - Fatigue [Recovering/Resolving]
  - Platelet count decreased [Unknown]
  - Lymphocyte count decreased [Unknown]

NARRATIVE: CASE EVENT DATE: 20210429
